FAERS Safety Report 21171999 (Version 1)
Quarter: 2022Q3

REPORT INFORMATION
  Report Type: Spontaneous
  Country: CA (occurrence: CA)
  Receive Date: 20220804
  Receipt Date: 20220804
  Transmission Date: 20221027
  Serious: Yes (Disabling, Other)
  Sender: FDA-Public Use
  Company Number: CA-PFIZER INC-202201029696

PATIENT
  Sex: Female

DRUGS (1)
  1. ESTRADIOL [Interacting]
     Active Substance: ESTRADIOL

REACTIONS (9)
  - Burning sensation [Unknown]
  - Condition aggravated [Unknown]
  - Drug interaction [Unknown]
  - Eye pain [Unknown]
  - Optic nerve injury [Unknown]
  - Paraesthesia [Unknown]
  - Retinal injury [Unknown]
  - Vision blurred [Unknown]
  - Visual field defect [Unknown]
